FAERS Safety Report 6995066-9 (Version None)
Quarter: 2010Q3

REPORT INFORMATION
  Report Type: 
  Country: None (occurrence: None)
  Receive Date: 20100917
  Receipt Date: 20090410
  Transmission Date: 20110219
  Serious: Yes (Other)
  Sender: FDA-Public Use
  Company Number: HQWYE823304AUG04

PATIENT
  Sex: Female
  Weight: 88.98 kg

DRUGS (7)
  1. PREMPRO [Suspect]
     Dosage: 0.625MG/2.5MG
     Dates: start: 19960101, end: 20020101
  2. ALTACE [Concomitant]
  3. MEDROXYPROGESTERONE ACETATE [Suspect]
  4. SYNTHROID [Concomitant]
  5. PREMARIN [Suspect]
     Dosage: 0.3MG
     Dates: start: 20020101
  6. PROVERA [Suspect]
     Dosage: 2.5MG
     Dates: start: 20020101
  7. PROVERA [Suspect]
     Dosage: 2.5MG
     Dates: start: 19950101, end: 19960101

REACTIONS (1)
  - BREAST CANCER [None]
